FAERS Safety Report 23308741 (Version 1)
Quarter: 2023Q4

REPORT INFORMATION
  Report Type: Spontaneous
  Country: AU (occurrence: AU)
  Receive Date: 20231218
  Receipt Date: 20231218
  Transmission Date: 20240109
  Serious: Yes (Hospitalization)
  Sender: FDA-Public Use
  Company Number: AU-BEH-2023166375

PATIENT
  Age: 12 Year
  Sex: Female
  Weight: 81.5 kg

DRUGS (8)
  1. HUMAN IMMUNOGLOBULIN G [Suspect]
     Active Substance: HUMAN IMMUNOGLOBULIN G
     Indication: Immunodeficiency common variable
     Dosage: 20 GRAM, EVERY 4 WEEKS
     Route: 042
     Dates: start: 20230626, end: 20230626
  2. HUMAN IMMUNOGLOBULIN G [Suspect]
     Active Substance: HUMAN IMMUNOGLOBULIN G
     Indication: Bacterial infection
  3. ENOXAPARIN SODIUM [Concomitant]
     Active Substance: ENOXAPARIN SODIUM
     Indication: Occipital lobe stroke
  4. ENOXAPARIN SODIUM [Concomitant]
     Active Substance: ENOXAPARIN SODIUM
     Indication: Parietal lobe stroke
  5. ENOXAPARIN SODIUM [Concomitant]
     Active Substance: ENOXAPARIN SODIUM
     Indication: Occipital lobe stroke
  6. AMPHOTERICIN B [Concomitant]
     Active Substance: AMPHOTERICIN B
     Indication: Acute lymphocytic leukaemia
     Dosage: 250 MILLIGRAM, QD
  7. ENOXAPARIN [Concomitant]
     Active Substance: ENOXAPARIN
     Indication: Thrombosis
     Dosage: 50 MILLIGRAM, QD
     Dates: start: 20230626
  8. ACETAMINOPHEN [Concomitant]
     Active Substance: ACETAMINOPHEN
     Indication: Pain
     Dosage: 650 MILLIGRAM
     Dates: start: 20230626

REACTIONS (8)
  - Chills [Recovered/Resolved]
  - Incorrect drug administration rate [Recovered/Resolved]
  - Blood pressure increased [Recovered/Resolved]
  - Incorrect drug administration rate [Recovered/Resolved]
  - Body temperature increased [Recovered/Resolved]
  - Incorrect drug administration rate [Recovered/Resolved]
  - Respiratory rate increased [Recovered/Resolved]
  - Incorrect drug administration rate [Recovered/Resolved]

NARRATIVE: CASE EVENT DATE: 20230626
